FAERS Safety Report 6260812-9 (Version None)
Quarter: 2009Q3

REPORT INFORMATION
  Report Type: 
  Country: None (occurrence: None)
  Receive Date: 20090707
  Receipt Date: 20090622
  Transmission Date: 20100115
  Serious: Yes (Hospitalization)
  Sender: FDA-Public Use
  Company Number: 1000006555

PATIENT
  Age: 69 Year
  Sex: Female

DRUGS (34)
  1. MILNACIPRAN (MILNACIPRAN HYDROCHLORIDE) (TABLETS) [Suspect]
     Indication: DYSTHYMIC DISORDER
     Dosage: 75 MG (75 MG, 1 IN 1 D), ORAL
     Route: 048
     Dates: start: 20061023
  2. WINTERMIN [Suspect]
     Indication: DYSTHYMIC DISORDER
     Dosage: 0.15 GM (0.15 GM, 1 IN 1 D), ORAL
     Route: 048
     Dates: start: 20070312
  3. WINTERMIN [Suspect]
     Indication: DYSTHYMIC DISORDER
     Dosage: 0.15 GM (0.15 GM, 1 IN 1 D), ORAL
     Route: 048
     Dates: start: 20090522
  4. CONSTAN [Suspect]
     Indication: DYSTHYMIC DISORDER
     Dosage: 1.2 MG (1.2 MG, 1 IN 1 D), ORAL
     Route: 048
     Dates: start: 20070312
  5. DEPAKENE [Suspect]
     Indication: INSOMNIA
     Dosage: 200 MG (200 MG, 1 IN 1 D), ORAL
     Route: 048
     Dates: start: 20070405
  6. PARULEON [Suspect]
     Indication: INSOMNIA
     Dosage: 0.25 MG (0.25 MG, 1 IN 1 D), ORAL
     Route: 048
     Dates: start: 20080530
  7. MYSLEE [Suspect]
     Indication: INSOMNIA
     Dosage: 10 MG (10 MG, 1 IN 1 D), ORAL
     Route: 048
     Dates: start: 20080530, end: 20090518
  8. VEGETAMIN B [Suspect]
     Indication: INSOMNIA
     Dosage: 1 DOSAGE FORMS (1 DOSAGE FORMS, 1 IN D), ORAL
     Route: 048
     Dates: start: 20071023
  9. UNKNOWN DRUG *SYNTHETIC NARCOTIC DRUG) [Suspect]
     Indication: INSOMNIA
     Dosage: 25 MCG/HR (25 MCG/HR, DAILY); 12.5 MCG/HR (12.5 MCG/HR, DAILY)
     Dates: start: 20090309, end: 20090316
  10. UNKNOWN DRUG *SYNTHETIC NARCOTIC DRUG) [Suspect]
     Indication: INSOMNIA
     Dosage: 25 MCG/HR (25 MCG/HR, DAILY); 12.5 MCG/HR (12.5 MCG/HR, DAILY)
     Dates: start: 20090317
  11. ELCATONIN [Concomitant]
  12. CELECOXIB [Concomitant]
  13. ALDIOXA [Concomitant]
  14. TIZANIDINE HYDROCHLORIDE [Concomitant]
  15. DICLOFENAC SODIUM [Concomitant]
  16. KETOPROFEN [Concomitant]
  17. KETOPROFEN [Concomitant]
  18. MAGNESIUM OXIDE [Concomitant]
  19. PANTETHINE [Concomitant]
  20. SENNOSIDE [Concomitant]
  21. LIMAPROST [Concomitant]
  22. HYALURONATE SODIUM [Concomitant]
  23. BATAMETHASONE VALERATE [Concomitant]
  24. GENTAMICIN [Concomitant]
  25. MIXED KILLED BACTERIA PREPARATIONS [Concomitant]
  26. BAKUMONDO TO [Concomitant]
  27. NIFEDIPINE [Concomitant]
  28. DILTIAZEM HYDROCHLORIDE [Concomitant]
  29. RABEPRAZOLE SODIUM [Concomitant]
  30. ISOSORBIDE DINITRATE [Concomitant]
  31. ALUMINUM HYDROXIDE WITH MAGNESIUM HYDROXIDE [Concomitant]
  32. CLOSTRIDIUM BUTYRICUM [Concomitant]
  33. PANCREATIC ENZYMES [Concomitant]
  34. SODIUM GUALENATE [Concomitant]

REACTIONS (11)
  - CONSTIPATION [None]
  - DYSTHYMIC DISORDER [None]
  - GASTROOESOPHAGEAL REFLUX DISEASE [None]
  - INSOMNIA [None]
  - OEDEMA PERIPHERAL [None]
  - PNEUMOCOCCAL INFECTION [None]
  - PNEUMONIA ASPIRATION [None]
  - SOMNOLENCE [None]
  - URINARY INCONTINENCE [None]
  - URINARY TRACT INFECTION BACTERIAL [None]
  - VOMITING [None]
